FAERS Safety Report 7790974-3 (Version None)
Quarter: 2011Q4

REPORT INFORMATION
  Report Type: 
  Country: None (occurrence: None)
  Receive Date: 20111002
  Receipt Date: 20110919
  Transmission Date: 20120403
  Serious: Yes (Hospitalization)
  Sender: FDA-Public Use
  Company Number: PHHO2011FR12719

PATIENT
  Sex: Female
  Weight: 77 kg

DRUGS (6)
  1. PREDNISONE [Concomitant]
     Indication: RENAL TRANSPLANT
     Dosage: 5 MG, BID
     Route: 048
     Dates: start: 20100909
  2. BACTRIM [Suspect]
  3. RAD 666 / RAD 001A [Suspect]
     Indication: RENAL TRANSPLANT
     Dosage: 2 MG, BID
     Route: 048
     Dates: start: 20101014, end: 20110726
  4. STEROIDS NOS [Concomitant]
     Dosage: 1 MG/KG, UNK
  5. PROGRAF [Concomitant]
     Dosage: 3 MG IN THE MORNING AND 3.5 MG IN THE EVENING
  6. MYCOPHENOLATE MOFETIL (CELLCEPT) [Concomitant]
     Indication: RENAL TRANSPLANT
     Dosage: 500 MG, BID
     Route: 048
     Dates: start: 20100903

REACTIONS (4)
  - PNEUMOCYSTIS JIROVECI PNEUMONIA [None]
  - RENAL IMPAIRMENT [None]
  - PNEUMONITIS [None]
  - TOXICITY TO VARIOUS AGENTS [None]
